FAERS Safety Report 13951178 (Version 1)
Quarter: 2017Q3

REPORT INFORMATION
  Report Type: Spontaneous
  Country: US (occurrence: US)
  Receive Date: 20170908
  Receipt Date: 20170908
  Transmission Date: 20171128
  Serious: No
  Sender: FDA-Public Use
  Company Number: US-JAZZ-2017-US-009011

PATIENT
  Sex: Male

DRUGS (21)
  1. TRAMADOL HCL [Concomitant]
     Active Substance: TRAMADOL HYDROCHLORIDE
  2. CALCIUM CITRATE WITH VITAMIN D3 [Concomitant]
  3. XYREM [Suspect]
     Active Substance: SODIUM OXYBATE
     Dosage: 4.5G, BID
     Route: 048
     Dates: start: 200803
  4. BACTRIM [Concomitant]
     Active Substance: SULFAMETHOXAZOLE\TRIMETHOPRIM
  5. CIPRO [Concomitant]
     Active Substance: CIPROFLOXACIN HYDROCHLORIDE
  6. XYREM [Suspect]
     Active Substance: SODIUM OXYBATE
     Dosage: 3G, BID
     Route: 048
     Dates: start: 200801, end: 200802
  7. MUPIROCIN. [Concomitant]
     Active Substance: MUPIROCIN
  8. ATORVASTATIN [Concomitant]
     Active Substance: ATORVASTATIN
  9. PREDNISONE. [Concomitant]
     Active Substance: PREDNISONE
  10. RITALIN [Concomitant]
     Active Substance: METHYLPHENIDATE HYDROCHLORIDE
  11. TESTOSTERONE. [Concomitant]
     Active Substance: TESTOSTERONE
  12. GABAPENTIN. [Concomitant]
     Active Substance: GABAPENTIN
  13. TYLENOL EXTRA STRENGTH [Concomitant]
     Active Substance: ACETAMINOPHEN
  14. ESCITALOPRAM [Concomitant]
     Active Substance: ESCITALOPRAM OXALATE
  15. LYRICA [Concomitant]
     Active Substance: PREGABALIN
  16. ZYRTEC [Concomitant]
     Active Substance: CETIRIZINE HYDROCHLORIDE
  17. HYDROCODONE [Concomitant]
     Active Substance: HYDROCODONE
  18. XYREM [Suspect]
     Active Substance: SODIUM OXYBATE
     Indication: NARCOLEPSY
     Dosage: 2.25G, BID
     Route: 048
     Dates: start: 200706, end: 200711
  19. DIAZEPAM. [Concomitant]
     Active Substance: DIAZEPAM
  20. TYLENOL WITH CODEINE [Concomitant]
     Active Substance: ACETAMINOPHEN\CODEINE PHOSPHATE
  21. LISINOPRIL. [Concomitant]
     Active Substance: LISINOPRIL

REACTIONS (1)
  - Contusion [Unknown]
